FAERS Safety Report 17318266 (Version 1)
Quarter: 2020Q1

REPORT INFORMATION
  Report Type: Spontaneous
  Country: IT (occurrence: IT)
  Receive Date: 20200124
  Receipt Date: 20200124
  Transmission Date: 20200409
  Serious: Yes (Death, Other)
  Sender: FDA-Public Use
  Company Number: IT-AMNEAL PHARMACEUTICALS-2020-AMRX-00220

PATIENT
  Age: 40 Year
  Sex: Male

DRUGS (26)
  1. PROMAZINE [Interacting]
     Active Substance: PROMAZINE
     Dosage: 60 MILLIGRAM, 2 /DAY, AT 1PM AND AT NIGHT, DAY 5
     Route: 048
  2. DELORAZEPAM [Concomitant]
     Active Substance: DELORAZEPAM
     Dosage: 5 MILLIGRAM, AT NIGHT, DAY 2
     Route: 030
  3. CHLORPHENIRAMINE [CHLORPHENAMINE] [Concomitant]
     Active Substance: CHLORPHENIRAMINE
     Indication: BIPOLAR DISORDER
     Dosage: 10 MILLIGRAM, AT 8PM, DAY 1
     Route: 042
  4. HALOPERIDOL. [Interacting]
     Active Substance: HALOPERIDOL
     Dosage: 5 MILLIGRAM, 2 /DAY, AT 8AM AND 8PM, DAY 5
     Route: 048
  5. FLUVOXAMINE [Concomitant]
     Active Substance: FLUVOXAMINE
     Indication: BIPOLAR DISORDER
     Dosage: 200 MILLIGRAM, QD
     Route: 048
  6. DIVALPROEX SODIUM ER [Suspect]
     Active Substance: DIVALPROEX SODIUM
     Indication: BIPOLAR DISORDER
     Dosage: 500 MILLIGRAM, 1 /DAY
     Route: 048
  7. CLOZAPINE. [Interacting]
     Active Substance: CLOZAPINE
     Dosage: 300 MILLIGRAM, 2 /DAY, DAY 5, AT 8AM AND 1PM AND 300MG
     Route: 048
  8. PROMAZINE [Interacting]
     Active Substance: PROMAZINE
     Indication: BIPOLAR DISORDER
     Dosage: 60 MILLIGRAM, AT NIGHT, DAY 3
     Route: 048
  9. CLOZAPINE. [Interacting]
     Active Substance: CLOZAPINE
     Indication: BIPOLAR DISORDER
     Dosage: 400 MILLIGRAM, QD
     Route: 048
  10. HALOPERIDOL. [Interacting]
     Active Substance: HALOPERIDOL
     Dosage: 5 MILLIGRAM, QD, AT 8PM, DAY 4
     Route: 048
  11. DELORAZEPAM [Concomitant]
     Active Substance: DELORAZEPAM
     Indication: BIPOLAR DISORDER
     Dosage: 5 MILLIGRAM, AT 8PM, DAY 1
     Route: 042
  12. DELORAZEPAM [Concomitant]
     Active Substance: DELORAZEPAM
     Dosage: 5 MILLIGRAM, AT NIGHT, DAY 4
     Route: 048
  13. CHLORPROMAZINE. [Concomitant]
     Active Substance: CHLORPROMAZINE
     Indication: BIPOLAR DISORDER
     Dosage: 50 MILLIGRAM, AT 8PM, DAY 1
     Route: 042
  14. CLOTIAPINE [Concomitant]
     Active Substance: CLOTHIAPINE
     Indication: BIPOLAR DISORDER
     Dosage: 40 MILLIGRAM, AT NIGHT DAY 1
     Route: 030
  15. HALOPERIDOL. [Interacting]
     Active Substance: HALOPERIDOL
     Indication: BIPOLAR DISORDER
     Dosage: 15 MILLIGRAM, AT 1PM, DAY 1
     Route: 042
  16. PROMAZINE [Interacting]
     Active Substance: PROMAZINE
     Dosage: 60 MILLIGRAM, AT NIGHT, DAY 4
     Route: 048
  17. MIDAZOLAM HYDROCHLORIDE. [Concomitant]
     Active Substance: MIDAZOLAM HYDROCHLORIDE
     Dosage: 5 UNK
     Route: 042
  18. DELORAZEPAM [Concomitant]
     Active Substance: DELORAZEPAM
     Dosage: 5 MILLIGRAM, AT NIGHT, DAY 5
     Route: 048
  19. CLOTIAPINE [Concomitant]
     Active Substance: CLOTHIAPINE
     Dosage: 40 MILLIGRAM, AT 8PM, DAY 2
     Route: 030
  20. CLOTIAPINE [Concomitant]
     Active Substance: CLOTHIAPINE
     Dosage: 40 MILLIGRAM, 3 /DAY, AT 8AM, 1PM AND 8PM, DAY 3
     Route: 030
  21. DELORAZEPAM [Concomitant]
     Active Substance: DELORAZEPAM
     Dosage: 5 MILLIGRAM, AT NIGHT, DAY 3
     Route: 048
  22. DIVALPROEX SODIUM ER [Interacting]
     Active Substance: DIVALPROEX SODIUM
     Dosage: 500 MILLIGRAM, 3 /DAY, DAY 3, AT 8AM, 1PM AND 8PM
     Route: 048
  23. CLOZAPINE. [Interacting]
     Active Substance: CLOZAPINE
     Dosage: 100 MILLIGRAM, 3 /DAY, DAY 3 AT 8AM, 1PM AND 8PM
     Route: 048
  24. CLOZAPINE. [Interacting]
     Active Substance: CLOZAPINE
     Dosage: 400 MILLIGRAM, 3 /DAY, DAY 4, AT 8AM, 1PM AND 8PM
     Route: 048
  25. MIDAZOLAM HYDROCHLORIDE. [Concomitant]
     Active Substance: MIDAZOLAM HYDROCHLORIDE
     Indication: BIPOLAR DISORDER
     Dosage: 20 MILLIGRAM, QD, AT 1PM AND AT NIGHT, DAY 1
     Route: 042
  26. CHLORPROMAZINE. [Concomitant]
     Active Substance: CHLORPROMAZINE
     Dosage: 50 MILLIGRAM, AT NIGHT, DAY 2
     Route: 042

REACTIONS (3)
  - Toxicity to various agents [Fatal]
  - Drug interaction [Fatal]
  - Sudden cardiac death [Fatal]
